FAERS Safety Report 4923191-2 (Version None)
Quarter: 2006Q1

REPORT INFORMATION
  Report Type: 
  Country: None (occurrence: None)
  Receive Date: 20060113
  Receipt Date: 20050126
  Transmission Date: 20060701
  Serious: Yes (Other)
  Sender: FDA-Public Use
  Company Number: HQWYE198416JUL04

PATIENT
  Sex: Female
  Weight: 108.96 kg

DRUGS (2)
  1. PREMPRO [Suspect]
     Indication: DRUG USE FOR UNKNOWN INDICATION
     Dosage: ORAL
     Route: 048
     Dates: start: 19900101
  2. TOPRAL (SULTOPRIDE) [Concomitant]

REACTIONS (1)
  - MYOCARDIAL INFARCTION [None]
